FAERS Safety Report 5008812-0 (Version None)
Quarter: 2006Q2

REPORT INFORMATION
  Report Type: 
  Country: None (occurrence: None)
  Receive Date: 20060519
  Receipt Date: 20060504
  Transmission Date: 20061013
  Serious: Yes (Hospitalization)
  Sender: FDA-Public Use
  Company Number: 2006BI005271

PATIENT
  Age: 43 Year
  Sex: Female
  Weight: 80.7403 kg

DRUGS (4)
  1. AVONEX [Suspect]
     Indication: MULTIPLE SCLEROSIS
     Dosage: 30 UG; QW; IM
     Route: 030
     Dates: start: 20050601
  2. ULTRAM [Concomitant]
  3. ZANAFLEX [Concomitant]
  4. FLEXERIL [Concomitant]

REACTIONS (3)
  - BACK PAIN [None]
  - HEADACHE [None]
  - SPINAL FUSION SURGERY [None]
